FAERS Safety Report 10581408 (Version 1)
Quarter: 2014Q4

REPORT INFORMATION
  Report Type: Spontaneous
  Country: US (occurrence: None)
  Receive Date: 20141112
  Receipt Date: 20141112
  Transmission Date: 20150529
  Serious: Yes (Other)
  Sender: FDA-Public Use
  Company Number: None

PATIENT
  Age: 66 Year
  Sex: Female
  Weight: 155 kg

DRUGS (1)
  1. HAIR REGROWTH TREATMENT [Suspect]
     Active Substance: MINOXIDIL

REACTIONS (1)
  - Rash [None]

NARRATIVE: CASE EVENT DATE: 20141020
